FAERS Safety Report 9097632 (Version 1)
Quarter: 2013Q1

REPORT INFORMATION
  Report Type: Spontaneous
  Country: US (occurrence: US)
  Receive Date: 20130212
  Receipt Date: 20130212
  Transmission Date: 20140127
  Serious: No
  Sender: FDA-Public Use
  Company Number: US-BAYER-2013-014996

PATIENT
  Age: 50 Year
  Sex: Female

DRUGS (2)
  1. AVELOX [Suspect]
     Indication: SINUSITIS
     Dosage: 400 MG, QD
     Route: 048
     Dates: start: 20130103, end: 20130108
  2. CLARITIN-D [Concomitant]

REACTIONS (2)
  - Urticaria [Recovered/Resolved]
  - Tremor [Recovered/Resolved]
